FAERS Safety Report 10514193 (Version 4)
Quarter: 2014Q4

REPORT INFORMATION
  Report Type: Report from Study
  Country: FR (occurrence: FR)
  Receive Date: 20141013
  Receipt Date: 20141201
  Transmission Date: 20150528
  Serious: Yes (Hospitalization)
  Sender: FDA-Public Use
  Company Number: FR-EISAI MEDICAL RESEARCH-E7389-01638-CLI-FR

PATIENT
  Age: 59 Year
  Sex: Female
  Weight: 60 kg

DRUGS (5)
  1. DURAGESIC [Concomitant]
     Active Substance: FENTANYL
  2. MEGACE [Concomitant]
     Active Substance: MEGESTROL ACETATE
  3. OXYNORM [Concomitant]
     Active Substance: OXYCODONE HYDROCHLORIDE
  4. AMOXICILLIN. [Concomitant]
     Active Substance: AMOXICILLIN
     Indication: PROPHYLAXIS
     Dates: start: 201105
  5. ERIBULIN [Suspect]
     Active Substance: ERIBULIN
     Indication: BREAST CANCER
     Route: 041
     Dates: start: 20110706, end: 20110908

REACTIONS (2)
  - Thrombocytopenia [Not Recovered/Not Resolved]
  - Haematemesis [Recovered/Resolved]

NARRATIVE: CASE EVENT DATE: 20111005
